FAERS Safety Report 7258604-7 (Version None)
Quarter: 2011Q1

REPORT INFORMATION
  Report Type: 
  Country: None (occurrence: None)
  Receive Date: 20110129
  Receipt Date: 20100502
  Transmission Date: 20110831
  Serious: No
  Sender: FDA-Public Use
  Company Number: US-ABBOTT-09P-163-0503324-00

PATIENT
  Sex: Female
  Weight: 70.37 kg

DRUGS (9)
  1. IRON [Concomitant]
     Indication: ANAEMIA
     Route: 048
  2. WELLBUTRIN [Concomitant]
     Indication: ANTIDEPRESSANT THERAPY
     Route: 048
  3. MIRALAX [Concomitant]
     Indication: PRODUCT USED FOR UNKNOWN INDICATION
  4. HUMIRA [Suspect]
     Indication: CROHN'S DISEASE
     Route: 058
     Dates: start: 20080901, end: 20081001
  5. HUMIRA [Suspect]
     Route: 058
     Dates: start: 20080204
  6. PROBIOTIC [Concomitant]
     Indication: CROHN'S DISEASE
     Route: 048
  7. CIPRO [Concomitant]
     Indication: PROPHYLAXIS
     Route: 048
  8. PREDNISONE [Concomitant]
     Indication: CROHN'S DISEASE
     Dates: end: 20081001
  9. PREDNISONE [Concomitant]
     Indication: ERYTHEMA NODOSUM

REACTIONS (9)
  - URINARY TRACT INFECTION [None]
  - ERYTHEMA NODOSUM [None]
  - SUBCUTANEOUS ABSCESS [None]
  - PYREXIA [None]
  - ABDOMINAL PAIN [None]
  - DRUG INEFFECTIVE [None]
  - INJECTION SITE REACTION [None]
  - CROHN'S DISEASE [None]
  - COLITIS [None]
